FAERS Safety Report 5106637-9 (Version None)
Quarter: 2006Q3

REPORT INFORMATION
  Report Type: 
  Country: None (occurrence: None)
  Receive Date: 20060913
  Receipt Date: 20060828
  Transmission Date: 20061208
  Serious: Yes (Death, Other)
  Sender: FDA-Public Use
  Company Number: JP200608002218

PATIENT
  Age: 80 Year
  Sex: Male

DRUGS (3)
  1. EVISTA [Suspect]
     Indication: OSTEOPOROSIS
     Dosage: ORAL
     Route: 048
     Dates: start: 20060415, end: 20060518
  2. WARFARIN SODIUM [Concomitant]
  3. VITAMIN K NOS (VITAMIN K NOS) [Concomitant]

REACTIONS (3)
  - CARDIAC FAILURE [None]
  - DISSEMINATED INTRAVASCULAR COAGULATION [None]
  - SHOCK HAEMORRHAGIC [None]
